FAERS Safety Report 5226911-5 (Version None)
Quarter: 2007Q1

REPORT INFORMATION
  Report Type: 
  Country: None (occurrence: None)
  Receive Date: 20070201
  Receipt Date: 20070201
  Transmission Date: 20070707
  Serious: Yes (Life-Threatening)
  Sender: FDA-Public Use
  Company Number: None

PATIENT
  Age: 40 Year
  Sex: Female
  Weight: 65 kg

DRUGS (2)
  1. MOTRIN [Suspect]
     Indication: TOOTHACHE
     Dates: start: 20070112, end: 20070126
  2. TYLENOL [Suspect]
     Indication: TOOTHACHE
     Dates: start: 20070112, end: 20070126

REACTIONS (6)
  - ABDOMINAL PAIN UPPER [None]
  - HAEMATEMESIS [None]
  - INCORRECT DOSE ADMINISTERED [None]
  - MEDICATION ERROR [None]
  - NAUSEA [None]
  - VOMITING [None]
